FAERS Safety Report 10475526 (Version 2)
Quarter: 2014Q4

REPORT INFORMATION
  Report Type: Spontaneous
  Country: US (occurrence: US)
  Receive Date: 20140925
  Receipt Date: 20141120
  Transmission Date: 20150528
  Serious: Yes (Other)
  Sender: FDA-Public Use
  Company Number: US-ALLERGAN-1420667US

PATIENT
  Age: 46 Year
  Sex: Female

DRUGS (3)
  1. BOTOX COSMETIC [Suspect]
     Active Substance: ONABOTULINUMTOXINA
     Indication: SKIN WRINKLING
     Dosage: UNK, SINGLE
     Dates: start: 20140905, end: 20140905
  2. BOTOX COSMETIC [Suspect]
     Active Substance: ONABOTULINUMTOXINA
     Indication: SKIN WRINKLING
     Dosage: UNK, SINGLE
     Dates: start: 20140905, end: 20140905
  3. VITAMINS [Concomitant]
     Active Substance: VITAMINS

REACTIONS (5)
  - Dysgeusia [Unknown]
  - Dehydration [Unknown]
  - Multiple sclerosis [Unknown]
  - Musculoskeletal disorder [Unknown]
  - Dysphagia [Unknown]
